FAERS Safety Report 16714777 (Version 2)
Quarter: 2021Q4

REPORT INFORMATION
  Report Type: Spontaneous
  Country: JP (occurrence: JP)
  Receive Date: 20190819
  Receipt Date: 20211117
  Transmission Date: 20220303
  Serious: Yes (Other)
  Sender: FDA-Public Use
  Company Number: PHHY2019JP178896

PATIENT
  Age: 71 Year
  Sex: Female
  Weight: 35 kg

DRUGS (7)
  1. PREDNISOLONE [Suspect]
     Active Substance: PREDNISOLONE
     Indication: Waldenstrom^s macroglobulinaemia
     Dosage: 50 MG, QD
     Route: 065
     Dates: start: 201402
  2. PREDNISOLONE [Suspect]
     Active Substance: PREDNISOLONE
     Dosage: 10 MG, QD
     Route: 065
  3. PREDNISOLONE [Suspect]
     Active Substance: PREDNISOLONE
     Dosage: UNK, CYCLIC (FIVE CYCLES)
     Route: 065
     Dates: start: 201402
  4. RITUXIMAB [Suspect]
     Active Substance: RITUXIMAB
     Indication: Waldenstrom^s macroglobulinaemia
     Dosage: UNK (ALONG WITH CHOP)
     Route: 065
  5. DOXORUBICIN [Concomitant]
     Active Substance: DOXORUBICIN
     Indication: Waldenstrom^s macroglobulinaemia
     Dosage: UNK, CYCLIC (FIVE CYCLES)
     Route: 065
     Dates: start: 201402
  6. CYCLOPHOSPHAMIDE [Concomitant]
     Active Substance: CYCLOPHOSPHAMIDE
     Indication: Waldenstrom^s macroglobulinaemia
     Dosage: UNK, CYCLIC (FIVE CYCLES)
     Route: 065
     Dates: start: 201402
  7. VINCRISTINE [Concomitant]
     Active Substance: VINCRISTINE
     Indication: Waldenstrom^s macroglobulinaemia
     Dosage: UNK, CYCLIC (FIVE CYCLES)
     Route: 065
     Dates: start: 201402

REACTIONS (9)
  - Cryoglobulinaemia [Unknown]
  - Osteonecrosis [Not Recovered/Not Resolved]
  - Pain in extremity [Recovered/Resolved]
  - Bone marrow oedema [Recovered/Resolved]
  - Tumour lysis syndrome [Unknown]
  - Paraproteinaemia [Unknown]
  - Oxygen saturation decreased [Unknown]
  - Pyrexia [Unknown]
  - Cough [Unknown]
